FAERS Safety Report 5506198-6 (Version None)
Quarter: 2007Q4

REPORT INFORMATION
  Report Type: 
  Country: None (occurrence: None)
  Receive Date: 20071101
  Receipt Date: 20071018
  Transmission Date: 20080405
  Serious: Yes (Hospitalization, Other)
  Sender: FDA-Public Use
  Company Number: STI-2007-01722

PATIENT
  Age: 24 Year
  Sex: Female

DRUGS (1)
  1. CLOBETASOL                (CLOBETASOL PROPIONATE) [Suspect]
     Dosage: WHOLE BODY SURFACE

REACTIONS (5)
  - AMENORRHOEA [None]
  - CUSHING'S SYNDROME [None]
  - HYPERTENSION [None]
  - IATROGENIC INJURY [None]
  - SKIN ULCER [None]
